FAERS Safety Report 8806832 (Version 1)
Quarter: 2012Q4

REPORT INFORMATION
  Report Type: 
  Country: US (occurrence: US)
  Receive Date: 20120925
  Receipt Date: 20120925
  Transmission Date: 20130627
  Serious: Yes (Other)
  Sender: FDA-Public Use
  Company Number: US-ELI_LILLY_AND_COMPANY-US201209004716

PATIENT

DRUGS (1)
  1. OLANZAPINE [Suspect]
     Indication: AGITATION
     Route: 030

REACTIONS (1)
  - Hypoxia [Unknown]
